FAERS Safety Report 6170558-3 (Version None)
Quarter: 2009Q2

REPORT INFORMATION
  Report Type: 
  Country: None (occurrence: None)
  Receive Date: 20090428
  Receipt Date: 20090416
  Transmission Date: 20091009
  Serious: Yes (Other)
  Sender: FDA-Public Use
  Company Number: MX-ELI_LILLY_AND_COMPANY-MX200904004665

PATIENT
  Age: 62 Year
  Sex: Female
  Weight: 70 kg

DRUGS (8)
  1. FORTEO [Suspect]
     Indication: OSTEOPOROSIS
     Dosage: 20 UG, DAILY (1/D)
     Route: 058
     Dates: start: 20081001, end: 20090101
  2. FORTEO [Suspect]
     Dosage: 20 UG, DAILY (1/D)
     Route: 058
     Dates: start: 20090415
  3. PLAVIX [Concomitant]
     Indication: ANTICOAGULANT THERAPY
     Dosage: 75 MG, OTHER
     Route: 065
     Dates: start: 20050101
  4. ANGIOTROFIN [Concomitant]
     Dosage: UNK, 2/D
     Route: 065
     Dates: start: 20050101
  5. OLMESARTAN MEDOXOMIL [Concomitant]
     Indication: BLOOD PRESSURE
     Dosage: 40 MG, DAILY (1/D)
     Route: 065
     Dates: start: 20050101
  6. ZYLOPRIM [Concomitant]
     Indication: BLOOD URIC ACID
     Dosage: 300 MG, EACH EVENING
     Route: 065
     Dates: start: 20080101
  7. INSULIN RAPID [Concomitant]
     Dosage: 38 IU, EACH MORNING
     Route: 065
  8. INSULIN [Concomitant]
     Dosage: UNK, UNKNOWN
     Route: 065

REACTIONS (2)
  - INTERNAL HERNIA [None]
  - WOUND INFECTION [None]
